FAERS Safety Report 25614193 (Version 2)
Quarter: 2025Q3

REPORT INFORMATION
  Report Type: Spontaneous
  Country: US (occurrence: US)
  Receive Date: 20250728
  Receipt Date: 20250819
  Transmission Date: 20251020
  Serious: No
  Sender: MERCK SHARP & DOHME LLC
  Company Number: US-009507513-2307216

PATIENT

DRUGS (2)
  1. STERILE WATER [Suspect]
     Active Substance: WATER
     Route: 030
     Dates: start: 20250701, end: 20250701
  2. VARIVAX [Suspect]
     Active Substance: VARICELLA-ZOSTER VIRUS STRAIN OKA/MERCK LIVE ANTIGEN
     Indication: Prophylaxis
     Route: 030
     Dates: start: 20250701, end: 20250701

REACTIONS (6)
  - Wound [Recovered/Resolved]
  - Needle issue [Unknown]
  - Complication of device removal [Unknown]
  - Poor quality device used [Unknown]
  - Injury associated with device [Unknown]
  - Product label on wrong product [Unknown]

NARRATIVE: CASE EVENT DATE: 20250701
